FAERS Safety Report 17678430 (Version 4)
Quarter: 2020Q2

REPORT INFORMATION
  Report Type: Spontaneous
  Country: DE (occurrence: DE)
  Receive Date: 20200417
  Receipt Date: 20200615
  Transmission Date: 20200714
  Serious: Yes (Life-Threatening, Hospitalization, Other)
  Sender: FDA-Public Use
  Company Number: DE-BRISTOL-MYERS SQUIBB COMPANY-BMS-2020-030914

PATIENT
  Age: 64 Year
  Sex: Female

DRUGS (2)
  1. ELIQUIS [Suspect]
     Active Substance: APIXABAN
     Indication: CEREBROVASCULAR ACCIDENT PROPHYLAXIS
     Dosage: 2.5 MILLIGRAM, BID
     Route: 048
     Dates: start: 201802, end: 20200320
  2. ELIQUIS [Suspect]
     Active Substance: APIXABAN
     Indication: AORTIC VALVE REPLACEMENT
     Dosage: 2.5 MILLIGRAM, BID
     Route: 048
     Dates: start: 20200413

REACTIONS (3)
  - Subarachnoid haemorrhage [Unknown]
  - Arrhythmia [Unknown]
  - Subdural haematoma [Unknown]

NARRATIVE: CASE EVENT DATE: 201905
